FAERS Safety Report 8150633-4 (Version None)
Quarter: 2012Q1

REPORT INFORMATION
  Report Type: 
  Country: None (occurrence: None)
  Receive Date: 20120220
  Receipt Date: 20120208
  Transmission Date: 20120608
  Serious: Yes (Other)
  Sender: FDA-Public Use
  Company Number: PHEH2012US003408

PATIENT
  Sex: Female
  Weight: 177 kg

DRUGS (6)
  1. GLEEVEC [Suspect]
     Dosage: 400 MG, QD
     Route: 048
     Dates: start: 20090817, end: 20100817
  2. SPIRONOLACTONE [Concomitant]
  3. MAVIK [Concomitant]
  4. FENOFIBRATE [Concomitant]
  5. BYETTA [Concomitant]
  6. DIGOXIN [Concomitant]

REACTIONS (14)
  - OEDEMA PERIPHERAL [None]
  - DECREASED APPETITE [None]
  - HEPATIC NEOPLASM [None]
  - DIARRHOEA [None]
  - SKIN LESION [None]
  - DERMAL CYST [None]
  - MASS [None]
  - NECROSIS [None]
  - ANAEMIA MACROCYTIC [None]
  - ABDOMINAL PAIN LOWER [None]
  - MUSCULOSKELETAL DISCOMFORT [None]
  - NAUSEA [None]
  - ARRHYTHMIA [None]
  - FATIGUE [None]
